FAERS Safety Report 25506185 (Version 1)
Quarter: 2025Q3

REPORT INFORMATION
  Report Type: Spontaneous
  Country: US (occurrence: US)
  Receive Date: 20250702
  Receipt Date: 20250702
  Transmission Date: 20251020
  Serious: Yes (Life-Threatening, Hospitalization, Other)
  Sender: IOVANCE BIOTHERAPEUTICS MANUFACTURING LLC
  Company Number: US-IOVANCE BIOTHERAPEUTICS INC.-IOV2025000051

PATIENT

DRUGS (4)
  1. PROLEUKIN [Suspect]
     Active Substance: ALDESLEUKIN
     Indication: Metastatic malignant melanoma
     Route: 042
     Dates: start: 20250403, end: 20250405
  2. AMTAGVI [Suspect]
     Active Substance: LIFILEUCEL
     Indication: Metastatic malignant melanoma
     Route: 042
     Dates: start: 20250402, end: 20250402
  3. CYCLOPHOSPHAMIDE [Suspect]
     Active Substance: CYCLOPHOSPHAMIDE
     Indication: Metastatic malignant melanoma
     Route: 042
     Dates: start: 20250324, end: 20250325
  4. FLUDARABINE [Suspect]
     Active Substance: FLUDARABINE PHOSPHATE
     Indication: Metastatic malignant melanoma
     Route: 042
     Dates: start: 20250326, end: 20250330

REACTIONS (1)
  - Autoimmune haemolytic anaemia [Recovered/Resolved]

NARRATIVE: CASE EVENT DATE: 20250505
